FAERS Safety Report 7153625-7 (Version None)
Quarter: 2010Q4

REPORT INFORMATION
  Report Type: 
  Country: None (occurrence: None)
  Receive Date: 20101213
  Receipt Date: 20101203
  Transmission Date: 20110411
  Serious: Yes (Other)
  Sender: FDA-Public Use
  Company Number: FI-ASTRAZENECA-2010SE58091

PATIENT
  Sex: Female

DRUGS (2)
  1. SEROQUEL XR [Suspect]
     Indication: PSYCHOTIC DISORDER
     Route: 048
     Dates: start: 20081201
  2. SEROQUEL XR [Suspect]
     Route: 048
     Dates: start: 20100101, end: 20101203

REACTIONS (2)
  - LEUKOPENIA [None]
  - NEUTROPENIA [None]
